FAERS Safety Report 10075448 (Version 2)
Quarter: 2014Q2

REPORT INFORMATION
  Report Type: Spontaneous
  Country: US (occurrence: US)
  Receive Date: 20140414
  Receipt Date: 20140414
  Transmission Date: 20141212
  Serious: No
  Sender: FDA-Public Use
  Company Number: US-DRREDDYS-USA/USA/13/0029427

PATIENT
  Age: 53 Year
  Sex: Female
  Weight: 54.48 kg

DRUGS (2)
  1. LEVOFLOXACIN TABLETS [Suspect]
     Indication: DERMATITIS CONTACT
     Route: 048
     Dates: start: 201209
  2. PREDNISONE [Concomitant]
     Indication: PRODUCT USED FOR UNKNOWN INDICATION
     Route: 065
     Dates: start: 201209

REACTIONS (1)
  - Photosensitivity reaction [Recovering/Resolving]
